FAERS Safety Report 7750114-3 (Version None)
Quarter: 2011Q3

REPORT INFORMATION
  Report Type: 
  Country: None (occurrence: None)
  Receive Date: 20110912
  Receipt Date: 20110831
  Transmission Date: 20111222
  Serious: Yes (Other)
  Sender: FDA-Public Use
  Company Number: 2011SP041344

PATIENT
  Age: 26 Year
  Sex: Female
  Weight: 44 kg

DRUGS (5)
  1. VITAMINS NOS [Concomitant]
  2. SULFASALAZINE [Suspect]
     Indication: CROHN'S DISEASE
     Dosage: 500 MG;QID;
  3. CO-BECETAMOL [Concomitant]
  4. IMPLANON [Suspect]
     Indication: CONTRACEPTION
     Dates: start: 20101227
  5. AZATHIOPRINE [Suspect]
     Indication: CROHN'S DISEASE
     Dosage: 100 MG;QD;

REACTIONS (4)
  - PREGNANCY WITH IMPLANT CONTRACEPTIVE [None]
  - MATERNAL EXPOSURE DURING PREGNANCY [None]
  - ABORTION SPONTANEOUS [None]
  - DRUG PRESCRIBING ERROR [None]
